FAERS Safety Report 9189189 (Version 1)
Quarter: 2013Q1

REPORT INFORMATION
  Report Type: Spontaneous
  Country: US (occurrence: None)
  Receive Date: 20130322
  Receipt Date: 20130322
  Transmission Date: 20140127
  Serious: Yes (Death, Hospitalization, Other)
  Sender: FDA-Public Use
  Company Number: None

PATIENT
  Age: 39 Year
  Sex: Male
  Weight: 75.3 kg

DRUGS (3)
  1. ANTABUSE -DISULFIRAM- 250 MG GETTING INFORMATION [Suspect]
     Indication: IMPAIRED DRIVING ABILITY
     Dosage: 01/13/2012--04/13/2013 ?3 MONTHS
     Route: 048
     Dates: start: 20120113
  2. ANTABUSE -DISULFIRAM- 250 MG GETTING INFORMATION [Suspect]
     Indication: BLOOD ALCOHOL ABNORMAL
     Dosage: 01/13/2012--04/13/2013 ?3 MONTHS
     Route: 048
     Dates: start: 20120113
  3. ANTABUSE -DISULFIRAM- 250 MG GETTING INFORMATION [Suspect]
     Indication: LEGAL PROBLEM
     Dosage: 01/13/2012--04/13/2013 ?3 MONTHS
     Route: 048
     Dates: start: 20120113

REACTIONS (6)
  - Ocular icterus [None]
  - Yellow skin [None]
  - Thinking abnormal [None]
  - Liver disorder [None]
  - Brain oedema [None]
  - Liver transplant [None]
